FAERS Safety Report 5216676-5 (Version None)
Quarter: 2006Q4

REPORT INFORMATION
  Report Type: 
  Country: None (occurrence: None)
  Receive Date: 20061130
  Receipt Date: 20060920
  Transmission Date: 20070319
  Serious: Yes (Hospitalization)
  Sender: FDA-Public Use
  Company Number: US_0509122356

PATIENT
  Age: 25 Year
  Sex: Female
  Weight: 95.2 kg

DRUGS (10)
  1. ZYPREXA [Suspect]
     Dosage: SEE IMAGE
     Dates: start: 20010101, end: 20030101
  2. ZYPREXA [Suspect]
     Dosage: SEE IMAGE
     Dates: start: 20020201, end: 20031201
  3. PREDNISONE TAB [Concomitant]
  4. NEURONTIN [Concomitant]
  5. .. [Concomitant]
  6. PERCOCET [Concomitant]
  7. PANCREASE (PANCRELIPASE) [Concomitant]
  8. INSULIN (INSULIN) [Concomitant]
  9. LEXAPRO  /USA/(ESCITALOPRAM) [Concomitant]
  10. HYDROCORTISONE [Concomitant]

REACTIONS (4)
  - OBESITY [None]
  - PANCREATITIS CHRONIC [None]
  - VISION BLURRED [None]
  - WEIGHT DECREASED [None]
